FAERS Safety Report 5331106-0 (Version None)
Quarter: 2007Q2

REPORT INFORMATION
  Report Type: 
  Country: None (occurrence: None)
  Receive Date: 20070522
  Receipt Date: 20070517
  Transmission Date: 20071010
  Serious: Yes (Death, Hospitalization)
  Sender: FDA-Public Use
  Company Number: IN-BRISTOL-MYERS SQUIBB COMPANY-13785373

PATIENT
  Age: 40 Year
  Sex: Male

DRUGS (1)
  1. BARACLUDE [Suspect]
     Dosage: THE PATIENT STARTED ON .05 MG ON 31-JUL-2006, AFTER 3 MONTHS THE DOSAGE WAS INCREASED TO 1 MG.
     Route: 048
     Dates: start: 20060731, end: 20070502

REACTIONS (1)
  - CEREBRAL HAEMORRHAGE [None]
